FAERS Safety Report 23462737 (Version 1)
Quarter: 2024Q1

REPORT INFORMATION
  Report Type: Report from Study
  Country: DE (occurrence: DE)
  Receive Date: 20240131
  Receipt Date: 20240131
  Transmission Date: 20240410
  Serious: Yes (Other)
  Sender: FDA-Public Use
  Company Number: DE-UCBSA-2023012491

PATIENT
  Sex: Male

DRUGS (19)
  1. TOPIRAMATE [Suspect]
     Active Substance: TOPIRAMATE
     Indication: Epilepsy
     Dosage: 50 MILLIGRAM, 2X/DAY (BID)
     Route: 048
     Dates: start: 20221130, end: 20221214
  2. TOPIRAMATE [Suspect]
     Active Substance: TOPIRAMATE
     Dosage: 25 MILLIGRAM, ONCE DAILY (QD)
     Route: 048
     Dates: start: 20230622, end: 20230628
  3. TOPIRAMATE [Suspect]
     Active Substance: TOPIRAMATE
     Dosage: 25-0-50 MG
     Route: 048
     Dates: start: 20221215, end: 20221222
  4. TOPIRAMATE [Suspect]
     Active Substance: TOPIRAMATE
     Dosage: 25 MILLIGRAM, 2X/DAY (BID)
     Route: 048
     Dates: start: 20221223, end: 20230119
  5. TOPIRAMATE [Suspect]
     Active Substance: TOPIRAMATE
     Dosage: 25 MILLIGRAM, ONCE DAILY (QD)
     Route: 048
     Dates: start: 20230816, end: 20230830
  6. TOPIRAMATE [Suspect]
     Active Substance: TOPIRAMATE
     Dosage: 50-0-75 MG
     Route: 048
     Dates: start: 20221123, end: 20221129
  7. TOPIRAMATE [Suspect]
     Active Substance: TOPIRAMATE
     Dosage: 25 MILLIGRAM, ONCE DAILY (QD)
     Route: 048
     Dates: start: 20230120
  8. TOPIRAMATE [Suspect]
     Active Substance: TOPIRAMATE
     Dosage: 75 MILLIGRAM, 2X/DAY (BID)
     Route: 048
     Dates: start: 20221115, end: 20221122
  9. TOPIRAMATE [Suspect]
     Active Substance: TOPIRAMATE
     Dosage: 25 MILLIGRAM, 2X/DAY (BID)
     Route: 048
     Dates: start: 20230629, end: 20230815
  10. TOPIRAMATE [Suspect]
     Active Substance: TOPIRAMATE
     Dosage: 75-0-100 MG
     Route: 048
     Dates: end: 20221114
  11. BRIVIACT [Suspect]
     Active Substance: BRIVARACETAM
     Indication: Epilepsy
     Dosage: 25-0-50 MG
     Route: 048
     Dates: start: 20221024, end: 20221030
  12. BRIVIACT [Suspect]
     Active Substance: BRIVARACETAM
     Dosage: 50 MILLIGRAM, 2X/DAY (BID)
     Route: 048
     Dates: start: 20230531
  13. BRIVIACT [Suspect]
     Active Substance: BRIVARACETAM
     Dosage: 50 MILLIGRAM, 2X/DAY (BID)
     Route: 048
     Dates: start: 20221031
  14. BRIVIACT [Suspect]
     Active Substance: BRIVARACETAM
     Dosage: 50-0-75 MG, TWICE DAILY
     Route: 048
     Dates: start: 20230419, end: 20230425
  15. BRIVIACT [Suspect]
     Active Substance: BRIVARACETAM
     Dosage: 75 MILLIGRAM, 2X/DAY (BID)
     Route: 048
     Dates: start: 20230831
  16. BRIVIACT [Suspect]
     Active Substance: BRIVARACETAM
     Dosage: 50 MILLIGRAM, 2X/DAY (BID)
     Route: 048
     Dates: start: 20230531, end: 20230815
  17. BRIVIACT [Suspect]
     Active Substance: BRIVARACETAM
     Dosage: 25 MILLIGRAM, 2X/DAY (BID)
     Route: 048
     Dates: start: 20221017, end: 20221023
  18. BRIVIACT [Suspect]
     Active Substance: BRIVARACETAM
     Dosage: 50MG-0-75MG BID
     Route: 048
     Dates: start: 20230816, end: 20230830
  19. BRIVIACT [Suspect]
     Active Substance: BRIVARACETAM
     Dosage: 75 MILLIGRAM, 2X/DAY (BID)
     Route: 048
     Dates: start: 20230426, end: 20230530

REACTIONS (13)
  - Periorbital haematoma [Recovered/Resolved]
  - Hyperacusis [Not Recovered/Not Resolved]
  - Somnolence [Recovered/Resolved]
  - Off label use [Unknown]
  - Sleep disorder [Recovered/Resolved]
  - Headache [Not Recovered/Not Resolved]
  - Drug tolerance [Unknown]
  - Impaired driving ability [Recovered/Resolved]
  - Mood swings [Recovered/Resolved]
  - Fatigue [Recovered/Resolved]
  - Hyperacusis [Not Recovered/Not Resolved]
  - Communication disorder [Recovered/Resolved]
  - Arthralgia [Not Recovered/Not Resolved]

NARRATIVE: CASE EVENT DATE: 20221020
